FAERS Safety Report 10192085 (Version 1)
Quarter: 2014Q2

REPORT INFORMATION
  Report Type: Spontaneous
  Country: CL (occurrence: CL)
  Receive Date: 20140523
  Receipt Date: 20140523
  Transmission Date: 20141212
  Serious: Yes (Hospitalization, Other)
  Sender: FDA-Public Use
  Company Number: CL-PFIZER INC-2014137761

PATIENT
  Age: 32 Year
  Sex: Female

DRUGS (1)
  1. CARDURA [Suspect]
     Dosage: UNK
     Dates: start: 20140407

REACTIONS (1)
  - Pre-eclampsia [Not Recovered/Not Resolved]
